FAERS Safety Report 22627619 (Version 1)
Quarter: 2023Q2

REPORT INFORMATION
  Report Type: Spontaneous
  Country: US (occurrence: US)
  Receive Date: 20230622
  Receipt Date: 20230622
  Transmission Date: 20230721
  Serious: Yes (Hospitalization)
  Sender: FDA-Public Use
  Company Number: US-MELINTA THERAPEUTICS, LLC-US-MLNT-23-00370

PATIENT

DRUGS (4)
  1. KIMYRSA [Suspect]
     Active Substance: ORITAVANCIN DIPHOSPHATE
     Indication: Osteomyelitis
     Dosage: 1200 MILLIGRAM, QD
     Route: 042
     Dates: start: 20221226, end: 20221226
  2. KIMYRSA [Suspect]
     Active Substance: ORITAVANCIN DIPHOSPHATE
     Dosage: 1200 MILLIGRAM, QD
     Route: 042
     Dates: start: 20230102, end: 20230102
  3. VANCOMYCIN [Concomitant]
     Active Substance: VANCOMYCIN
     Indication: Osteomyelitis
  4. CEFTRIAXONE [Concomitant]
     Active Substance: CEFTRIAXONE
     Indication: Osteomyelitis

REACTIONS (7)
  - Dyspnoea [Unknown]
  - Pain [Unknown]
  - Chest pain [Unknown]
  - Back pain [Unknown]
  - Infusion related reaction [Unknown]
  - Off label use [Unknown]
  - Multiple use of single-use product [Unknown]

NARRATIVE: CASE EVENT DATE: 20221226
